FAERS Safety Report 4568319-1 (Version None)
Quarter: 2005Q1

REPORT INFORMATION
  Report Type: 
  Country: None (occurrence: None)
  Receive Date: 20050131
  Receipt Date: 20050117
  Transmission Date: 20050727
  Serious: Yes (Hospitalization, Other)
  Sender: FDA-Public Use
  Company Number: 2005014052

PATIENT
  Age: 86 Year
  Sex: Female
  Weight: 72 kg

DRUGS (15)
  1. CELEBREX [Suspect]
     Indication: ILL-DEFINED DISORDER
     Dosage: 200 MG (200 MG, 1 IN1 D), ORAL
     Route: 048
     Dates: end: 20041029
  2. ACETAMINOPHEN AND TRAMADOL HCL [Suspect]
     Indication: ILL-DEFINED DISORDER
     Dosage: (4 IN 1 D), ORAL
     Route: 048
     Dates: end: 20041029
  3. FLUINDIONE (FLUINDIONE) [Suspect]
     Indication: ILL-DEFINED DISORDER
     Dosage: 3-4 DOSE FORMS (20 MG, 1 D), ORAL
     Route: 048
     Dates: end: 20041029
  4. FUROSEMIDE (FUROSEMDIE) [Concomitant]
  5. RAMIPRIL [Concomitant]
  6. ATENOLOL [Concomitant]
  7. SPIRONOLACTONE [Concomitant]
  8. ZOLPIDEM TARTRATE [Concomitant]
  9. ALL OTHER THERAPEUTIC PRODUCTS (ALL OTHER THERAPEUTIC PRODUCTS) [Concomitant]
  10. TRIMETAZIDINE (TRIMETAZIDINE) [Concomitant]
  11. OXYBUTYNIN CHLORIDE [Concomitant]
  12. NICORANDIL (NICORANDIL) [Concomitant]
  13. MACROGOL (MACROGOL) [Concomitant]
  14. MORPHINE SULFATE [Concomitant]
  15. SODIUM POLYSTYRENE SULFONATE (SODIUM POLYSTYRENE SULFONATE) [Concomitant]

REACTIONS (10)
  - DIZZINESS [None]
  - DRUG INTERACTION [None]
  - ENDOSCOPY UPPER GASTROINTESTINAL TRACT ABNORMAL [None]
  - INTERNATIONAL NORMALISED RATIO INCREASED [None]
  - MELAENA [None]
  - PROTHROMBIN TIME RATIO DECREASED [None]
  - RENAL FAILURE ACUTE [None]
  - SOMNOLENCE [None]
  - TRAUMATIC HAEMATOMA [None]
  - ULCER [None]
